FAERS Safety Report 10472317 (Version 2)
Quarter: 2014Q4

REPORT INFORMATION
  Report Type: Spontaneous
  Country: US (occurrence: None)
  Receive Date: 20140922
  Receipt Date: 20141112
  Transmission Date: 20150528
  Serious: No
  Sender: FDA-Public Use
  Company Number: 2014-20345

PATIENT
  Age: 61 Year
  Sex: Male
  Weight: 82.1 kg

DRUGS (1)
  1. EYLEA [Suspect]
     Active Substance: AFLIBERCEPT
     Indication: AGE-RELATED MACULAR DEGENERATION
     Dosage: 2 MG MILLIGRAM(S), UNK, INTRAOCULAR
     Route: 031
     Dates: start: 20141028

REACTIONS (3)
  - Vision blurred [None]
  - Therapeutic response decreased [None]
  - Retinal oedema [None]
